FAERS Safety Report 6016530-5 (Version None)
Quarter: 2008Q4

REPORT INFORMATION
  Report Type: 
  Country: None (occurrence: None)
  Receive Date: 20081222
  Receipt Date: 20081210
  Transmission Date: 20090506
  Serious: Yes (Hospitalization, Other)
  Sender: FDA-Public Use
  Company Number: BR-PFIZER INC-2004061904

PATIENT

DRUGS (2)
  1. ZOLOFT [Suspect]
     Route: 048
     Dates: start: 19960801
  2. XALATAN [Suspect]
     Dosage: UNK

REACTIONS (3)
  - ARTERIAL OCCLUSIVE DISEASE [None]
  - CARDIAC DISORDER [None]
  - GLAUCOMA [None]
